FAERS Safety Report 8520242-3 (Version None)
Quarter: 2012Q3

REPORT INFORMATION
  Report Type: 
  Country: None (occurrence: None)
  Receive Date: 20120719
  Receipt Date: 20120709
  Transmission Date: 20120928
  Serious: Yes (Other)
  Sender: FDA-Public Use
  Company Number: US-JNJFOC-20111210058

PATIENT
  Sex: Female
  Weight: 86.18 kg

DRUGS (22)
  1. LEVAQUIN [Suspect]
     Route: 048
     Dates: start: 20110505
  2. INDERAL [Concomitant]
     Route: 065
  3. BUSPAR [Concomitant]
     Route: 065
  4. LEVAQUIN [Suspect]
     Route: 048
     Dates: start: 20100510
  5. LEVAQUIN [Suspect]
     Route: 048
     Dates: start: 20110311
  6. LEVOXYL [Concomitant]
     Route: 065
  7. TYLENOL PM [Concomitant]
     Dosage: 1 AT BED TIME
     Route: 065
  8. ZOVIRAX [Concomitant]
     Route: 065
  9. UNKNOWN MEDICATION [Concomitant]
     Dosage: 100 PREMIX PACKETS
     Route: 065
  10. FLONASE [Concomitant]
     Dosage: 2 SPRAY
     Route: 065
  11. ITRACONAZOLE [Concomitant]
     Route: 065
  12. PRILOSEC [Concomitant]
     Route: 065
  13. FLOVENT HFA [Concomitant]
     Dosage: 1 PUFF
     Route: 065
  14. LEVAQUIN [Suspect]
     Indication: SINUSITIS
     Route: 048
     Dates: start: 20100310
  15. LEVAQUIN [Suspect]
     Route: 048
     Dates: start: 20110721
  16. LEVAQUIN [Suspect]
     Route: 048
     Dates: start: 20111119, end: 20111122
  17. PROAIR HFA [Concomitant]
     Dosage: 2 PUFF
     Route: 065
  18. TYLENOL [Concomitant]
     Dosage: AS NECESSARY
     Route: 065
  19. GENTAMICIN [Concomitant]
     Dosage: GENTAMYCIN IN SALINE; 80/1000 ML
     Route: 065
  20. PULMICORT [Concomitant]
     Route: 065
  21. LOVASTATIN [Concomitant]
     Route: 065
  22. AUGMENTIN '500' [Suspect]
     Indication: SINUSITIS
     Dosage: FOR 14 DAYS
     Route: 065

REACTIONS (10)
  - AGEUSIA [None]
  - TENDONITIS [None]
  - ARTHRITIS [None]
  - PARAESTHESIA [None]
  - BURSITIS [None]
  - TENDON DISORDER [None]
  - SCIATICA [None]
  - PAROSMIA [None]
  - TOXICITY TO VARIOUS AGENTS [None]
  - DYSPNOEA [None]
